FAERS Safety Report 22602125 (Version 1)
Quarter: 2023Q2

REPORT INFORMATION
  Report Type: Report from Study
  Country: GB (occurrence: GB)
  Receive Date: 20230614
  Receipt Date: 20230614
  Transmission Date: 20230722
  Serious: Yes (Other)
  Sender: FDA-Public Use
  Company Number: GB-TAKEDA-2023TUS028002

PATIENT
  Sex: Female

DRUGS (2)
  1. VEDOLIZUMAB [Suspect]
     Active Substance: VEDOLIZUMAB
     Indication: Crohn^s disease
     Dosage: 108 MILLIGRAM, Q2WEEKS
     Route: 058
     Dates: start: 20230313
  2. VEDOLIZUMAB [Suspect]
     Active Substance: VEDOLIZUMAB
     Indication: Product used for unknown indication
     Dosage: UNK
     Route: 065

REACTIONS (9)
  - Invasive ductal breast carcinoma [Unknown]
  - Thrombosis [Unknown]
  - Diarrhoea [Recovered/Resolved]
  - Injection site rash [Recovered/Resolved]
  - Abdominal pain [Recovered/Resolved]
  - Insomnia [Unknown]
  - Pain [Unknown]
  - Arthritis [Unknown]
  - Paraesthesia [Unknown]
